FAERS Safety Report 17468665 (Version 1)
Quarter: 2020Q1

REPORT INFORMATION
  Report Type: Spontaneous
  Country: GB (occurrence: GB)
  Receive Date: 20200225
  Receipt Date: 20200225
  Transmission Date: 20200409
  Serious: Yes (Other)
  Sender: FDA-Public Use
  Company Number: GB-TEVA-2020-GB-1190742

PATIENT
  Age: 87 Year
  Sex: Female
  Weight: 102 kg

DRUGS (11)
  1. RAMIPRIL. [Concomitant]
     Active Substance: RAMIPRIL
     Dosage: 1 DF
  2. NEBIVOLOL. [Concomitant]
     Active Substance: NEBIVOLOL
  3. SIMVASTATIN. [Concomitant]
     Active Substance: SIMVASTATIN
     Dosage: 1 DF
  4. PARACETAMOL [Concomitant]
     Active Substance: ACETAMINOPHEN
     Dosage: EVERY FOUR TO SIX HOURS,2 DF
  5. SALICYLIC ACID. [Concomitant]
     Active Substance: SALICYLIC ACID
     Dosage: AS NEEDED
  6. CLENIL MODULITE [Concomitant]
     Active Substance: BECLOMETHASONE DIPROPIONATE
     Dosage: 4 DF
     Route: 055
  7. WARFARIN SODIUM. [Concomitant]
     Active Substance: WARFARIN SODIUM
     Dosage: AS PER CHART
  8. FUROSEMIDE. [Concomitant]
     Active Substance: FUROSEMIDE
  9. MUCOPOLYSACCHARIDE POLYSULFURIC ACID ESTER [Concomitant]
     Dosage: AS NEEDED
  10. TRIMETHOPRIM. [Suspect]
     Active Substance: TRIMETHOPRIM
     Dosage: 200 MG
  11. BIMATOPROST. [Concomitant]
     Active Substance: BIMATOPROST
     Dosage: USE AT NIGHT

REACTIONS (1)
  - Malaise [Recovered/Resolved]

NARRATIVE: CASE EVENT DATE: 20200207
